FAERS Safety Report 6197458-7 (Version None)
Quarter: 2009Q2

REPORT INFORMATION
  Report Type: 
  Country: None (occurrence: None)
  Receive Date: 20090521
  Receipt Date: 20090422
  Transmission Date: 20091009
  Serious: Yes (Hospitalization, Other)
  Sender: FDA-Public Use
  Company Number: US-TEVA-188360USA

PATIENT
  Sex: Male
  Weight: 81.72 kg

DRUGS (2)
  1. AZILECT [Suspect]
  2. VENLAFAXINE [Suspect]

REACTIONS (1)
  - SEROTONIN SYNDROME [None]
